FAERS Safety Report 7307357-2 (Version None)
Quarter: 2011Q1

REPORT INFORMATION
  Report Type: 
  Country: None (occurrence: None)
  Receive Date: 20110223
  Receipt Date: 20110218
  Transmission Date: 20110831
  Serious: Yes (Other)
  Sender: FDA-Public Use
  Company Number: US-PFIZER INC-2008001355

PATIENT
  Sex: Male

DRUGS (1)
  1. LIPITOR [Suspect]
     Dosage: 10 MG, 1X/DAY
     Dates: start: 20060201, end: 20060601

REACTIONS (10)
  - NEUROPATHY PERIPHERAL [None]
  - COGNITIVE DISORDER [None]
  - AMNESIA [None]
  - ASTHENIA [None]
  - DEPRESSION [None]
  - IRRITABILITY [None]
  - BALANCE DISORDER [None]
  - CONFUSIONAL STATE [None]
  - SPEECH DISORDER [None]
  - FATIGUE [None]
